FAERS Safety Report 9856299 (Version 3)
Quarter: 2014Q2

REPORT INFORMATION
  Report Type: Spontaneous
  Country: US (occurrence: US)
  Receive Date: 20140130
  Receipt Date: 20140508
  Transmission Date: 20141212
  Serious: Yes (Death, Hospitalization)
  Sender: FDA-Public Use
  Company Number: US-SA-2013SA127011

PATIENT
  Age: 83 Year
  Sex: Male
  Weight: 67.5 kg

DRUGS (31)
  1. PLAVIX [Suspect]
     Indication: PRODUCT USED FOR UNKNOWN INDICATION
     Route: 048
     Dates: start: 20111118
  2. PLAVIX [Suspect]
     Indication: PRODUCT USED FOR UNKNOWN INDICATION
     Route: 048
     Dates: start: 20111202
  3. ASPIRIN [Suspect]
     Route: 065
     Dates: start: 20111118
  4. ASPIRIN [Suspect]
     Route: 065
     Dates: start: 20111202
  5. PRADAXA [Suspect]
     Indication: ANTICOAGULANT THERAPY
     Route: 065
     Dates: start: 20111118
  6. PRADAXA [Suspect]
     Indication: ANTICOAGULANT THERAPY
     Route: 048
     Dates: start: 20111202
  7. AZITHROMYCIN [Concomitant]
     Dates: start: 20111206
  8. BENZOCAINE [Concomitant]
     Dates: start: 20111206
  9. TRAMADOL [Concomitant]
     Route: 048
     Dates: start: 20111202
  10. SODIUM CHLORIDE [Concomitant]
     Dates: start: 20111206
  11. DEXTROSE [Concomitant]
     Dates: start: 20111206
  12. ONDANSETRON [Concomitant]
     Dates: start: 20111206
  13. ACETAMINOPHEN [Concomitant]
     Dates: start: 20111206
  14. FENTANYL [Concomitant]
     Dates: start: 20111206
  15. PANTOPRAZOLE [Concomitant]
     Dates: start: 20111206
  16. PHYTONADIONE [Concomitant]
     Dates: start: 20111206
  17. VANCOMYCIN [Concomitant]
     Dates: start: 20111206
  18. VIGAMOX [Concomitant]
     Dates: start: 20111206
  19. PENICILLIN NOS [Concomitant]
     Dates: start: 20111206
  20. LEVAQUIN [Concomitant]
     Dates: start: 20111206
  21. NEXIUM [Concomitant]
     Route: 048
     Dates: start: 20111202
  22. CARVEDILOL [Concomitant]
     Route: 048
  23. LEVOTHYROXINE [Concomitant]
     Route: 048
     Dates: start: 20111202
  24. SPIRONOLACTONE [Concomitant]
     Route: 048
  25. ALL OTHER THERAPEUTIC PRODUCTS [Concomitant]
     Dates: start: 20111203
  26. DEMADEX [Concomitant]
  27. CYCLOBENZAPRINE [Concomitant]
  28. TRAZODONE [Concomitant]
     Route: 048
  29. AVODART [Concomitant]
     Route: 048
  30. CARDIZEM [Concomitant]
     Dates: start: 20090324
  31. WARFARIN [Concomitant]
     Indication: ATRIAL FIBRILLATION
     Route: 048

REACTIONS (8)
  - Respiratory failure [Fatal]
  - Oedema peripheral [Not Recovered/Not Resolved]
  - Asthenia [Not Recovered/Not Resolved]
  - Coagulopathy [Fatal]
  - Shock haemorrhagic [Fatal]
  - Hypotension [Fatal]
  - Haemorrhage [Fatal]
  - Dizziness [Not Recovered/Not Resolved]
